FAERS Safety Report 9485855 (Version 1)
Quarter: 2013Q3

REPORT INFORMATION
  Report Type: Spontaneous
  Country: US (occurrence: None)
  Receive Date: 20130827
  Receipt Date: 20130827
  Transmission Date: 20140515
  Serious: Yes (Hospitalization)
  Sender: FDA-Public Use
  Company Number: None

PATIENT
  Age: 54 Year
  Sex: Male
  Weight: 73.7 kg

DRUGS (1)
  1. TRAMADOL [Suspect]
     Dosage: 50 MG QID PO?03/12/2011 THRU ~03/13/2011
     Route: 048
     Dates: start: 20110312, end: 20110313

REACTIONS (1)
  - Drug hypersensitivity [None]
